FAERS Safety Report 10047811 (Version 1)
Quarter: 2014Q1

REPORT INFORMATION
  Report Type: Report from Study
  Country: SE (occurrence: SE)
  Receive Date: 20140331
  Receipt Date: 20140331
  Transmission Date: 20141002
  Serious: Yes (Other)
  Sender: FDA-Public Use
  Company Number: SE-UCBSA-115760

PATIENT
  Age: 77 Year
  Sex: Male

DRUGS (1)
  1. CIMZIA [Suspect]
     Indication: RHEUMATOID ARTHRITIS
     Route: 058
     Dates: start: 20130527

REACTIONS (1)
  - Oesophageal carcinoma [Not Recovered/Not Resolved]
